FAERS Safety Report 11346050 (Version 1)
Quarter: 2015Q3

REPORT INFORMATION
  Report Type: Spontaneous
  Country: US (occurrence: US)
  Receive Date: 20150803
  Receipt Date: 20150803
  Transmission Date: 20151125
  Serious: No
  Sender: FDA-Public Use
  Company Number: US-ELI_LILLY_AND_COMPANY-US200912004493

PATIENT
  Age: 39 Year
  Sex: Male

DRUGS (2)
  1. REMERON [Concomitant]
     Active Substance: MIRTAZAPINE
     Dosage: 15 MG, UNKNOWN
     Route: 048
  2. STRATTERA [Suspect]
     Active Substance: ATOMOXETINE HYDROCHLORIDE
     Indication: ATTENTION DEFICIT/HYPERACTIVITY DISORDER
     Dosage: 60 MG, DAILY (1/D)
     Route: 065

REACTIONS (3)
  - Sexual dysfunction [Not Recovered/Not Resolved]
  - Dyspareunia [Not Recovered/Not Resolved]
  - Testicular disorder [Not Recovered/Not Resolved]
